FAERS Safety Report 25795235 (Version 2)
Quarter: 2025Q3

REPORT INFORMATION
  Report Type: Spontaneous
  Country: US (occurrence: US)
  Receive Date: 20250912
  Receipt Date: 20250930
  Transmission Date: 20251021
  Serious: Yes (Other)
  Sender: Y-MABS THERAPEUTICS
  Company Number: US-Y-MABS THERAPEUTICS, INC.-LIT2025-US-002178

PATIENT

DRUGS (7)
  1. DANYELZA [Suspect]
     Active Substance: NAXITAMAB-GQGK
     Indication: Neuroblastoma recurrent
     Route: 042
  2. DANYELZA [Suspect]
     Active Substance: NAXITAMAB-GQGK
     Route: 042
  3. DANYELZA [Suspect]
     Active Substance: NAXITAMAB-GQGK
     Route: 042
  4. GRANULOCYTE-MACROPHAGE COLONY-STIMULATING FACTOR [Concomitant]
     Active Substance: GRANULOCYTE-MACROPHAGE COLONY-STIMULATING FACTOR
     Indication: Neuroblastoma recurrent
     Route: 058
  5. IRINOTECAN [Concomitant]
     Active Substance: IRINOTECAN
     Indication: Neuroblastoma recurrent
     Route: 042
  6. TEMOZOLOMIDE [Concomitant]
     Active Substance: TEMOZOLOMIDE
     Indication: Neuroblastoma recurrent
  7. LORLATINIB [Concomitant]
     Active Substance: LORLATINIB
     Indication: Neuroblastoma recurrent

REACTIONS (5)
  - Pneumonitis [Recovered/Resolved]
  - Altered state of consciousness [Recovered/Resolved]
  - Pyrexia [Recovered/Resolved]
  - Dyspnoea [Recovered/Resolved]
  - Off label use [Recovered/Resolved]
